FAERS Safety Report 9095208 (Version 1)
Quarter: 2013Q1

REPORT INFORMATION
  Report Type: Spontaneous
  Country: DE (occurrence: None)
  Receive Date: 20130122
  Receipt Date: 20130122
  Transmission Date: 20140127
  Serious: Yes (Other)
  Sender: FDA-Public Use
  Company Number: DSM-2013-00073

PATIENT
  Sex: Male

DRUGS (2)
  1. VOCADO (OLMESARTAN MEDOXOMIL, AMLODIPINE BESILATE)(TABLET)(OLMESARTAN MEDOXOMIL, AMLODIPINE BESILATE) [Suspect]
     Route: 048
     Dates: start: 201201
  2. DICLOFENAC [Suspect]
     Dates: end: 201211

REACTIONS (1)
  - Eye haemorrhage [None]
